FAERS Safety Report 26085766 (Version 1)
Quarter: 2025Q4

REPORT INFORMATION
  Report Type: Spontaneous
  Country: EU (occurrence: EU)
  Receive Date: 20251125
  Receipt Date: 20251125
  Transmission Date: 20260118
  Serious: Yes (Life-Threatening)
  Sender: ABBVIE
  Company Number: None

PATIENT
  Age: 67 Year
  Sex: Female
  Weight: 108 kg

DRUGS (3)
  1. DALBAVANCIN HYDROCHLORIDE [Suspect]
     Active Substance: DALBAVANCIN HYDROCHLORIDE
     Indication: Osteomyelitis
     Dosage: 1500 MG DOSE UNIQUE
     Route: 042
     Dates: start: 20250628, end: 20250628
  2. BACTRIM [Suspect]
     Active Substance: SULFAMETHOXAZOLE\TRIMETHOPRIM
     Indication: Osteomyelitis
     Dosage: 800/160 MG X 3 / J
     Route: 048
     Dates: start: 20250701, end: 20250710
  3. RIFAMPIN [Suspect]
     Active Substance: RIFAMPIN
     Indication: Osteomyelitis
     Dosage: 900 MG/J
     Route: 048
     Dates: start: 20250629, end: 20250706

REACTIONS (1)
  - Drug reaction with eosinophilia and systemic symptoms [Recovering/Resolving]

NARRATIVE: CASE EVENT DATE: 20250706
